FAERS Safety Report 5164736-X (Version None)
Quarter: 2006Q4

REPORT INFORMATION
  Report Type: 
  Country: None (occurrence: None)
  Receive Date: 20061205
  Receipt Date: 20020130
  Transmission Date: 20070319
  Serious: Yes (Hospitalization)
  Sender: FDA-Public Use
  Company Number: FR-GLAXOSMITHKLINE-B0135323A

PATIENT
  Age: 6 Week
  Sex: Male
  Weight: 3.5 kg

DRUGS (7)
  1. RETROVIR [Suspect]
     Indication: ANTIVIRAL PROPHYLAXIS
     Route: 048
     Dates: start: 19940526
  2. RETROVIR [Suspect]
     Route: 042
     Dates: start: 19940526, end: 19940526
  3. RETROVIR [Suspect]
     Indication: HIV INFECTION
     Route: 048
     Dates: start: 19940427
  4. IRON [Concomitant]
     Route: 065
  5. SECTRAL [Concomitant]
     Indication: HYPERTENSION
     Route: 065
  6. MYCOSTER [Concomitant]
     Route: 065
  7. VITAMINS [Concomitant]
     Route: 065

REACTIONS (3)
  - FOOT DEFORMITY [None]
  - NEUTROPENIA [None]
  - RESTLESSNESS [None]
